FAERS Safety Report 9865515 (Version 1)
Quarter: 2014Q1

REPORT INFORMATION
  Report Type: Spontaneous
  Country: US (occurrence: US)
  Receive Date: 20140203
  Receipt Date: 20140203
  Transmission Date: 20141002
  Serious: No
  Sender: FDA-Public Use
  Company Number: US-ALLERGAN-1309548US

PATIENT
  Age: 66 Year
  Sex: Female

DRUGS (3)
  1. RESTASIS [Suspect]
     Indication: DRY EYE
     Dosage: 2 GTT, BID
     Route: 047
     Dates: start: 201303
  2. PREDNISONE [Concomitant]
     Indication: ARTHRITIS
     Dosage: UNK
     Route: 048
  3. BLOOD PRESSURE MEDICINE NOS [Concomitant]
     Indication: HYPERTENSION
     Dosage: UNK

REACTIONS (2)
  - Eye irritation [Unknown]
  - Lacrimation increased [Unknown]
